FAERS Safety Report 6644707-4 (Version None)
Quarter: 2010Q1

REPORT INFORMATION
  Report Type: 
  Country: None (occurrence: None)
  Receive Date: 20100322
  Receipt Date: 20100310
  Transmission Date: 20100710
  Serious: Yes (Hospitalization)
  Sender: FDA-Public Use
  Company Number: TR-PFIZER INC-2010032039

PATIENT
  Age: 34 Year
  Sex: Female
  Weight: 55 kg

DRUGS (5)
  1. SALAZOPYRINE EN [Suspect]
     Dosage: 500 MG, 1X/DAY
     Route: 048
     Dates: start: 20091210, end: 20091217
  2. SALAZOPYRINE EN [Suspect]
     Dosage: 500 MG, 2X/DAY
     Route: 048
     Dates: start: 20091217, end: 20091224
  3. SALAZOPYRINE EN [Suspect]
     Dosage: 500 MG, 3X/DAY
     Route: 048
     Dates: start: 20091224, end: 20091231
  4. SALAZOPYRINE EN [Suspect]
     Dosage: 500 MG, 4X/DAY
     Route: 048
     Dates: start: 20091231, end: 20100110
  5. TAVANIC [Suspect]
     Dosage: 500 MG, 2X/DAY
     Route: 048
     Dates: start: 20100120, end: 20100122

REACTIONS (3)
  - DRUG ERUPTION [None]
  - HEPATIC ENZYME ABNORMAL [None]
  - PYREXIA [None]
